FAERS Safety Report 10083908 (Version 2)
Quarter: 2014Q2

REPORT INFORMATION
  Report Type: Report from Study
  Country: CA (occurrence: CA)
  Receive Date: 20140417
  Receipt Date: 20140424
  Transmission Date: 20141212
  Serious: Yes (Hospitalization)
  Sender: FDA-Public Use
  Company Number: CA-BRISTOL-MYERS SQUIBB COMPANY-20615589

PATIENT
  Age: 72 Year
  Sex: Male

DRUGS (14)
  1. ORENCIA [Suspect]
     Indication: RHEUMATOID ARTHRITIS
     Dosage: 1DF=500 UNITS NOS
     Dates: start: 20100729
  2. METHOTREXATE [Concomitant]
  3. SALAZOPYRIN [Concomitant]
  4. CALCIUM [Concomitant]
  5. SYNTHROID [Concomitant]
  6. FOLIC ACID [Concomitant]
  7. MORPHINE [Concomitant]
  8. AMITRIPTYLINE [Concomitant]
  9. MIRAPEX [Concomitant]
  10. OMEPRAZOLE [Concomitant]
  11. CHLOROQUINE [Concomitant]
  12. CRESTOR [Concomitant]
     Indication: BLOOD CHOLESTEROL INCREASED
  13. COLCHICINE [Concomitant]
     Indication: GOUT
  14. TYLENOL [Concomitant]
     Indication: ARTHRITIS

REACTIONS (1)
  - Myocardial infarction [Unknown]
